FAERS Safety Report 21081094 (Version 2)
Quarter: 2022Q3

REPORT INFORMATION
  Report Type: Spontaneous
  Country: US (occurrence: None)
  Receive Date: 20220714
  Receipt Date: 20220906
  Transmission Date: 20221027
  Serious: No
  Sender: FDA-Public Use
  Company Number: 2022A247788

PATIENT
  Sex: Female

DRUGS (1)
  1. PULMICORT FLEXHALER [Suspect]
     Active Substance: BUDESONIDE
     Dosage: PULMICORT FLEXHALER 180 MCG 180.0UG UNKNOWN
     Route: 055
     Dates: start: 202204

REACTIONS (2)
  - Dyspnoea [Unknown]
  - Device malfunction [Unknown]

NARRATIVE: CASE EVENT DATE: 20220404
